FAERS Safety Report 18694687 (Version 1)
Quarter: 2020Q4

REPORT INFORMATION
  Report Type: Spontaneous
  Country: US (occurrence: US)
  Receive Date: 20201231
  Receipt Date: 20201231
  Transmission Date: 20210114
  Serious: No
  Sender: FDA-Public Use
  Company Number: None

PATIENT
  Age: 43 Year
  Sex: Female

DRUGS (1)
  1. COSENTYX [Suspect]
     Active Substance: SECUKINUMAB
     Indication: PSORIATIC ARTHROPATHY
     Dosage: INJECT 150MG (1 PEN) SUBCUTANEOUSLY AT DAY 28 (DOSE 5) THEN EVERY 4  VWEEKS  AS DIRECTED
     Route: 058
     Dates: start: 202009

REACTIONS (4)
  - Pneumothorax [None]
  - Inflammation [None]
  - Muscle strain [None]
  - Chest injury [None]
